FAERS Safety Report 4943039-X (Version None)
Quarter: 2006Q1

REPORT INFORMATION
  Report Type: 
  Country: None (occurrence: None)
  Receive Date: 20060314
  Receipt Date: 20050419
  Transmission Date: 20060701
  Serious: Yes (Other)
  Sender: FDA-Public Use
  Company Number: PL-GLAXOSMITHKLINE-B0415279A

PATIENT
  Age: 31 Year
  Sex: Female

DRUGS (3)
  1. LAMOTRIGINE [Suspect]
     Indication: DRUG USE FOR UNKNOWN INDICATION
     Dosage: 50MG PER DAY
     Route: 065
     Dates: start: 20050404
  2. CLONAZEPAM [Concomitant]
     Dosage: 1MG PER DAY
     Route: 065
  3. DEPAKOTE [Concomitant]
     Dosage: 300MG PER DAY
     Route: 065

REACTIONS (3)
  - ABORTION INDUCED [None]
  - INTRA-UTERINE DEATH [None]
  - MISSED LABOUR [None]
